FAERS Safety Report 9384694 (Version 1)
Quarter: 2013Q3

REPORT INFORMATION
  Report Type: Spontaneous
  Country: US (occurrence: US)
  Receive Date: 20130705
  Receipt Date: 20130705
  Transmission Date: 20140515
  Serious: No
  Sender: FDA-Public Use
  Company Number: US-009507513-1307USA002573

PATIENT
  Age: 34 Year
  Sex: Female
  Weight: 54.42 kg

DRUGS (2)
  1. NUVARING [Suspect]
     Indication: CONTRACEPTION
     Dosage: UNK
     Route: 067
     Dates: start: 2012
  2. ADDERALL TABLETS [Concomitant]
     Dosage: UNK

REACTIONS (3)
  - Fungal infection [Unknown]
  - Product quality issue [Unknown]
  - Device breakage [Unknown]
